FAERS Safety Report 17453775 (Version 2)
Quarter: 2020Q1

REPORT INFORMATION
  Report Type: Spontaneous
  Country: US (occurrence: US)
  Receive Date: 20200224
  Receipt Date: 20200302
  Transmission Date: 20200409
  Serious: Yes (Other)
  Sender: FDA-Public Use
  Company Number: NVSC2020US049227

PATIENT
  Age: 40 Year
  Sex: Female

DRUGS (1)
  1. ILARIS [Suspect]
     Active Substance: CANAKINUMAB
     Indication: PRODUCT USED FOR UNKNOWN INDICATION
     Dosage: UNK  (IN DECEMBER)
     Route: 065

REACTIONS (3)
  - Still^s disease [Unknown]
  - Drug ineffective [Unknown]
  - Irritability [Unknown]

NARRATIVE: CASE EVENT DATE: 201912
